FAERS Safety Report 6640772-9 (Version None)
Quarter: 2010Q1

REPORT INFORMATION
  Report Type: 
  Country: None (occurrence: None)
  Receive Date: 20100318
  Receipt Date: 20100309
  Transmission Date: 20100710
  Serious: Yes (Hospitalization, Other)
  Sender: FDA-Public Use
  Company Number: US-PFIZER INC-2009289135

PATIENT
  Sex: Female

DRUGS (1)
  1. SUTENT [Suspect]
     Indication: METASTATIC RENAL CELL CARCINOMA
     Dosage: 50 MG DAILY, FOR 28 DAYS EVERY 42 DAYS
     Route: 048
     Dates: start: 20091001, end: 20091015

REACTIONS (8)
  - ANAEMIA [None]
  - BLOOD TEST ABNORMAL [None]
  - HAEMATOCHEZIA [None]
  - PULMONARY EMBOLISM [None]
  - PYREXIA [None]
  - RECALL PHENOMENON [None]
  - VOMITING [None]
  - WHITE BLOOD CELL COUNT DECREASED [None]
